FAERS Safety Report 4955746-3 (Version None)
Quarter: 2006Q1

REPORT INFORMATION
  Report Type: 
  Country: None (occurrence: None)
  Receive Date: 20060328
  Receipt Date: 20060315
  Transmission Date: 20060701
  Serious: Yes (Other)
  Sender: FDA-Public Use
  Company Number: US-ROCHE-440486

PATIENT
  Age: 52 Year
  Sex: Female

DRUGS (2)
  1. PEGASYS [Suspect]
     Route: 065
  2. COPEGUS [Suspect]
     Route: 065

REACTIONS (5)
  - ABDOMINAL PAIN UPPER [None]
  - HAEMOPTYSIS [None]
  - HEART RATE INCREASED [None]
  - HEPATIC CIRRHOSIS [None]
  - IMMUNE SYSTEM DISORDER [None]
